FAERS Safety Report 12386567 (Version 1)
Quarter: 2016Q2

REPORT INFORMATION
  Report Type: Spontaneous
  Country: US (occurrence: US)
  Receive Date: 20160519
  Receipt Date: 20160519
  Transmission Date: 20160815
  Serious: Yes (Other)
  Sender: FDA-Public Use
  Company Number: US-DEPOMED, INC.-US-2016DEP009641

PATIENT

DRUGS (7)
  1. SYNTHROID [Concomitant]
     Active Substance: LEVOTHYROXINE SODIUM
     Indication: THYROIDITIS
     Dosage: 100 ?G, QD, TAKES IN MORNING ON EMPTY STOMACH
     Route: 048
     Dates: start: 2003
  2. PERCOCET                           /00446701/ [Concomitant]
     Active Substance: ACETAMINOPHEN\OXYCODONE HYDROCHLORIDE\OXYCODONE TEREPHTHALATE
     Indication: PAIN
     Dosage: UNK, TAKES 1 TABLET EVERY 8HRS
     Route: 048
     Dates: end: 2016
  3. NUCYNTA ER [Suspect]
     Active Substance: TAPENTADOL HYDROCHLORIDE
     Indication: EAR PAIN
     Dosage: 150 MG, BID
     Route: 048
     Dates: start: 20160506, end: 20160509
  4. TRILEPTAL [Concomitant]
     Active Substance: OXCARBAZEPINE
     Indication: GLOSSOPHARYNGEAL NEURALGIA
     Dosage: 150 MG, BID, 1/2 TABLET
     Route: 048
     Dates: start: 20160505
  5. BACLOFEN. [Concomitant]
     Active Substance: BACLOFEN
     Indication: GLOSSOPHARYNGEAL NEURALGIA
     Dosage: 10 MG, QD
     Route: 048
  6. ZANTAC [Concomitant]
     Active Substance: RANITIDINE HYDROCHLORIDE
     Indication: PRODUCT USED FOR UNKNOWN INDICATION
     Dosage: UNK, PRN
     Route: 048
  7. CYTOMEL [Concomitant]
     Active Substance: LIOTHYRONINE SODIUM
     Indication: THYROID DISORDER
     Dosage: 5 ?G, QD, TAKES IN AFTERNOON DAILY
     Route: 048

REACTIONS (15)
  - Vomiting [Recovered/Resolved]
  - Miosis [Not Recovered/Not Resolved]
  - Abasia [Not Recovered/Not Resolved]
  - Hypotension [Not Recovered/Not Resolved]
  - Feeling abnormal [Not Recovered/Not Resolved]
  - Sudden onset of sleep [Not Recovered/Not Resolved]
  - Burn oesophageal [Recovering/Resolving]
  - Withdrawal syndrome [Recovering/Resolving]
  - Pupillary reflex impaired [Not Recovered/Not Resolved]
  - Heart rate decreased [Not Recovered/Not Resolved]
  - Malaise [Not Recovered/Not Resolved]
  - Daydreaming [Not Recovered/Not Resolved]
  - Respiratory rate decreased [Not Recovered/Not Resolved]
  - Dry mouth [Not Recovered/Not Resolved]
  - Glossodynia [Recovering/Resolving]

NARRATIVE: CASE EVENT DATE: 20160508
